FAERS Safety Report 7445591-1 (Version None)
Quarter: 2011Q2

REPORT INFORMATION
  Report Type: 
  Country: None (occurrence: None)
  Receive Date: 20110429
  Receipt Date: 20110422
  Transmission Date: 20111010
  Serious: Yes (Other)
  Sender: FDA-Public Use
  Company Number: US-ROXANE LABORATORIES, INC.-2011-RO-00560RO

PATIENT
  Age: 60 Year
  Sex: Male
  Weight: 58 kg

DRUGS (8)
  1. ATAZANAVIR [Suspect]
     Indication: AUTOIMMUNE DISORDER
     Dates: start: 20000201
  2. RITONAVIR [Suspect]
     Indication: AUTOIMMUNE DISORDER
     Dates: start: 20000201
  3. COMBIVIR [Suspect]
     Indication: AUTOIMMUNE DISORDER
  4. TENOFOVIR DISOPROXIL FUMARATE [Suspect]
     Indication: AUTOIMMUNE DISORDER
  5. FLUTICASONE/SALMETEROL [Suspect]
     Indication: BRONCHIECTASIS
     Route: 055
     Dates: start: 20030201
  6. TESTOSTERONE [Suspect]
     Indication: HYPOGONADISM
  7. ALBUTEROL [Suspect]
     Indication: BRONCHIECTASIS
     Route: 055
  8. FLUTICASONE PROPIONATE [Suspect]
     Indication: BRONCHIECTASIS
     Route: 055

REACTIONS (5)
  - OSTEONECROSIS [None]
  - FEMUR FRACTURE [None]
  - OSTEOPOROSIS [None]
  - SPINAL FRACTURE [None]
  - ADRENAL SUPPRESSION [None]
